FAERS Safety Report 5197066-0 (Version None)
Quarter: 2007Q1

REPORT INFORMATION
  Report Type: 
  Country: None (occurrence: None)
  Receive Date: 20070103
  Receipt Date: 20061221
  Transmission Date: 20070707
  Serious: Yes (Life-Threatening)
  Sender: FDA-Public Use
  Company Number: GSK1891

PATIENT
  Age: 35 Year
  Sex: Female

DRUGS (1)
  1. DIPHENHYDRAMINE HCL [Suspect]
     Indication: DRUG USE FOR UNKNOWN INDICATION
     Route: 048

REACTIONS (2)
  - INTENTIONAL OVERDOSE [None]
  - SOMNOLENCE [None]
